FAERS Safety Report 5961486-4 (Version None)
Quarter: 2008Q4

REPORT INFORMATION
  Report Type: 
  Country: None (occurrence: None)
  Receive Date: 20081121
  Receipt Date: 20081110
  Transmission Date: 20090506
  Serious: Yes (Death, Other)
  Sender: FDA-Public Use
  Company Number: US-ELI_LILLY_AND_COMPANY-US200810005624

PATIENT
  Age: 77 Year
  Sex: Male

DRUGS (5)
  1. XIGRIS [Suspect]
     Indication: SEPTIC SHOCK
     Dosage: UNK, UNK
     Dates: start: 20081001, end: 20081021
  2. HEPARIN SODIUM [Concomitant]
     Indication: THROMBOSIS PROPHYLAXIS
     Dates: start: 20081001
  3. ESOMEPRAZOLE MAGNESIUM [Concomitant]
     Dates: start: 20081001
  4. PHYTONADIONE [Concomitant]
  5. OXYGEN [Concomitant]
     Dates: start: 20081001

REACTIONS (5)
  - BRADYCARDIA [None]
  - GASTROINTESTINAL HAEMORRHAGE [None]
  - HYPOTENSION [None]
  - PSEUDOMEMBRANOUS COLITIS [None]
  - SEPSIS [None]
